FAERS Safety Report 5071532-0 (Version None)
Quarter: 2006Q3

REPORT INFORMATION
  Report Type: 
  Country: None (occurrence: None)
  Receive Date: 20060714
  Receipt Date: 20060601
  Transmission Date: 20061208
  Serious: No
  Sender: FDA-Public Use
  Company Number: 2006SP002282

PATIENT
  Age: 71 Year
  Sex: Female
  Weight: 48.9885 kg

DRUGS (5)
  1. LUNESTA [Suspect]
     Indication: INSOMNIA
     Dosage: SEE IMAGE
     Route: 048
     Dates: start: 20050101
  2. LUNESTA [Suspect]
     Indication: MENOPAUSE
     Dosage: SEE IMAGE
     Route: 048
     Dates: start: 20050101
  3. LUNESTA [Suspect]
     Indication: INSOMNIA
     Dosage: SEE IMAGE
     Route: 048
     Dates: start: 20050101
  4. LUNESTA [Suspect]
     Indication: MENOPAUSE
     Dosage: SEE IMAGE
     Route: 048
     Dates: start: 20050101
  5. FOSAMAX [Concomitant]

REACTIONS (1)
  - INSOMNIA [None]
